FAERS Safety Report 24030572 (Version 1)
Quarter: 2024Q2

REPORT INFORMATION
  Report Type: Spontaneous
  Country: US (occurrence: US)
  Receive Date: 20240628
  Receipt Date: 20240628
  Transmission Date: 20240716
  Serious: No
  Sender: FDA-Public Use
  Company Number: US-RIGEL PHARMACEUTICALS, INC.-2024OLU000025

PATIENT

DRUGS (3)
  1. REZLIDHIA [Suspect]
     Active Substance: OLUTASIDENIB
     Indication: Chronic obstructive pulmonary disease
     Dosage: 150 MG, BID
     Route: 048
     Dates: start: 20240222, end: 2024
  2. REZLIDHIA [Suspect]
     Active Substance: OLUTASIDENIB
     Dosage: 150 MG, BID
     Route: 048
     Dates: start: 2024
  3. TIBSOVO [Concomitant]
     Active Substance: IVOSIDENIB
     Indication: Myelodysplastic syndrome
     Dosage: 250 MG, QD
     Route: 048
     Dates: start: 20221128

REACTIONS (14)
  - Cardiac failure congestive [Unknown]
  - Glycosylated haemoglobin increased [Unknown]
  - Haemoglobin decreased [Unknown]
  - Asthenia [Unknown]
  - Dry skin [Unknown]
  - Platelet disorder [Unknown]
  - White blood cell count [Unknown]
  - Sleep apnoea syndrome [Unknown]
  - Off label use [Unknown]
  - Product use complaint [Unknown]
  - Nausea [Not Recovered/Not Resolved]
  - Vomiting [Not Recovered/Not Resolved]
  - Constipation [Unknown]
  - Diarrhoea [Recovered/Resolved]

NARRATIVE: CASE EVENT DATE: 20240101
